FAERS Safety Report 18558949 (Version 1)
Quarter: 2020Q4

REPORT INFORMATION
  Report Type: Spontaneous
  Country: US (occurrence: US)
  Receive Date: 20201126
  Receipt Date: 20201126
  Transmission Date: 20210114
  Serious: Yes (Disabling)
  Sender: FDA-Public Use
  Company Number: None

PATIENT
  Age: 28 Year
  Sex: Female
  Weight: 49.5 kg

DRUGS (7)
  1. ALPRAZOLAM 0.5 MG AS NEEDED [Suspect]
     Active Substance: ALPRAZOLAM
     Indication: GENERALISED ANXIETY DISORDER
     Dosage: ?          QUANTITY:30 TABLET(S);?
     Route: 048
  2. ALBUTEROL. [Concomitant]
     Active Substance: ALBUTEROL
  3. REXULTI [Concomitant]
     Active Substance: BREXPIPRAZOLE
  4. PROSOSIN [Concomitant]
  5. FLINTSTONES VITAMINS [Concomitant]
  6. ALPRAZOLAM 0.5 MG AS NEEDED [Suspect]
     Active Substance: ALPRAZOLAM
     Indication: PANIC DISORDER
     Dosage: ?          QUANTITY:30 TABLET(S);?
     Route: 048
  7. SYMBICORT [Concomitant]
     Active Substance: BUDESONIDE\FORMOTEROL FUMARATE DIHYDRATE

REACTIONS (2)
  - Compulsive shopping [None]
  - Loss of consciousness [None]

NARRATIVE: CASE EVENT DATE: 20180101
